FAERS Safety Report 25597252 (Version 1)
Quarter: 2025Q3

REPORT INFORMATION
  Report Type: Spontaneous
  Country: KR (occurrence: KR)
  Receive Date: 20250723
  Receipt Date: 20250723
  Transmission Date: 20251021
  Serious: Yes (Other)
  Sender: Harrow Health
  Company Number: NVSC2025KR109270

PATIENT
  Age: 41 Year
  Sex: Male

DRUGS (3)
  1. VIGAMOX [Suspect]
     Active Substance: MOXIFLOXACIN HYDROCHLORIDE
     Indication: Antibiotic therapy
     Route: 047
  2. SODIUM HYALURONATE [Concomitant]
     Active Substance: HYALURONATE SODIUM
  3. HOMATROPINE [Concomitant]
     Active Substance: HOMATROPINE HYDROBROMIDE

REACTIONS (2)
  - Keratitis bacterial [Recovered/Resolved with Sequelae]
  - Drug ineffective [Recovered/Resolved]
